FAERS Safety Report 21653023 (Version 1)
Quarter: 2022Q4

REPORT INFORMATION
  Report Type: Spontaneous
  Country: CA (occurrence: CA)
  Receive Date: 20221128
  Receipt Date: 20221128
  Transmission Date: 20230113
  Serious: Yes (Hospitalization, Other)
  Sender: FDA-Public Use
  Company Number: CA-ALLERGAN-2238978US

PATIENT
  Sex: Male

DRUGS (1)
  1. BOTOX [Suspect]
     Active Substance: ONABOTULINUMTOXINA
     Indication: Product used for unknown indication
     Dosage: UNK UNK, SINGLE
     Dates: start: 2022, end: 2022

REACTIONS (4)
  - Renal failure [Unknown]
  - Pulmonary oedema [Unknown]
  - Haemorrhage [Unknown]
  - Adhesion [Unknown]

NARRATIVE: CASE EVENT DATE: 20220101
